FAERS Safety Report 8735034 (Version 2)
Quarter: 2012Q4

REPORT INFORMATION
  Report Type: 
  Country: US (occurrence: US)
  Receive Date: 20120821
  Receipt Date: 20120828
  Transmission Date: 20130627
  Serious: Yes (Other)
  Sender: FDA-Public Use
  Company Number: CHPA2012US018135

PATIENT
  Age: 80 Year
  Sex: Female

DRUGS (1)
  1. TRIETHANOLAMINE POLYPEPTIDE COCOATE CONDENSATE [Suspect]
     Indication: SCOLIOSIS
     Dosage: Unk, BID
     Route: 061

REACTIONS (5)
  - Cerebrovascular accident [Recovered/Resolved]
  - VIIth nerve paralysis [Recovered/Resolved]
  - Amnesia [Recovered/Resolved]
  - Off label use [Unknown]
  - Incorrect drug administration duration [Unknown]
